FAERS Safety Report 18321738 (Version 1)
Quarter: 2020Q3

REPORT INFORMATION
  Report Type: Spontaneous
  Country: IN (occurrence: IN)
  Receive Date: 20200928
  Receipt Date: 20200928
  Transmission Date: 20201103
  Serious: Yes (Hospitalization, Other)
  Sender: FDA-Public Use
  Company Number: IN-PFIZER INC-2020370266

PATIENT
  Age: 34 Year
  Sex: Male
  Weight: 43 kg

DRUGS (1)
  1. CRIZALK [Suspect]
     Active Substance: CRIZOTINIB
     Indication: NON-SMALL CELL LUNG CANCER
     Dosage: 250 MG, 2X/DAY
     Route: 048
     Dates: start: 20200328

REACTIONS (8)
  - Lymphadenopathy [Recovering/Resolving]
  - Respiratory distress [Unknown]
  - Vomiting [Unknown]
  - Headache [Unknown]
  - Pleural effusion [Unknown]
  - Chest pain [Unknown]
  - Cough [Unknown]
  - Dyspnoea [Recovering/Resolving]

NARRATIVE: CASE EVENT DATE: 2020
